FAERS Safety Report 20001141 (Version 2)
Quarter: 2021Q4

REPORT INFORMATION
  Report Type: Spontaneous
  Country: US (occurrence: US)
  Receive Date: 20211027
  Receipt Date: 20211103
  Transmission Date: 20220303
  Serious: No
  Sender: FDA-Public Use
  Company Number: US-NOVARTISTESTPH-NVSC2021US244816

PATIENT
  Age: 71 Year
  Sex: Female

DRUGS (1)
  1. VOLTAREN [Suspect]
     Active Substance: DICLOFENAC SODIUM
     Indication: Pain
     Dosage: UNK (AT NIGHT)
     Route: 065
     Dates: start: 20211012, end: 20211013

REACTIONS (4)
  - Epistaxis [Recovered/Resolved]
  - Periorbital swelling [Recovered/Resolved]
  - Off label use [Unknown]
  - Product use issue [Unknown]
